FAERS Safety Report 19819525 (Version 1)
Quarter: 2021Q3

REPORT INFORMATION
  Report Type: Spontaneous
  Country: US (occurrence: US)
  Receive Date: 20210913
  Receipt Date: 20210913
  Transmission Date: 20211014
  Serious: No
  Sender: FDA-Public Use
  Company Number: US-APOTEX-2021AP028678

PATIENT
  Age: 85 Year
  Sex: Female

DRUGS (1)
  1. CALCITONIN SALMON (SYNTHETIC ORIGIN) NASAL SPRAY [Suspect]
     Active Substance: CALCITONIN SALMON
     Indication: PRODUCT USED FOR UNKNOWN INDICATION
     Dosage: UNK
     Route: 045
     Dates: start: 20210601

REACTIONS (3)
  - Product storage error [Unknown]
  - Product label issue [Unknown]
  - Product use complaint [Unknown]
